FAERS Safety Report 9785625 (Version 1)
Quarter: 2013Q4

REPORT INFORMATION
  Report Type: Spontaneous
  Country: FR (occurrence: None)
  Receive Date: 20131224
  Receipt Date: 20131224
  Transmission Date: 20140711
  Serious: Yes (Hospitalization)
  Sender: FDA-Public Use
  Company Number: 1982655

PATIENT
  Age: 56 Year
  Sex: Male

DRUGS (2)
  1. CARBOPLATIN [Suspect]
     Indication: ADENOCARCINOMA
     Route: 041
     Dates: start: 20100601, end: 20100621
  2. GEMZAR [Suspect]
     Indication: ADENOCARCINOMA
     Route: 041
     Dates: start: 20100601, end: 20100621

REACTIONS (1)
  - Hepatitis [None]
